FAERS Safety Report 6140764-2 (Version None)
Quarter: 2009Q1

REPORT INFORMATION
  Report Type: 
  Country: None (occurrence: None)
  Receive Date: 20090331
  Receipt Date: 20090317
  Transmission Date: 20090719
  Serious: Yes (Hospitalization)
  Sender: FDA-Public Use
  Company Number: 2009000819

PATIENT
  Age: 59 Year
  Sex: Female

DRUGS (7)
  1. ERLOTINIB(ERLOTINIB) (TABLET) (ERLOTINIB) [Suspect]
     Indication: LUNG NEOPLASM MALIGNANT
     Dosage: 150 MG, Q3W), ORAL
     Route: 048
     Dates: start: 20090126, end: 20090209
  2. ZOFRAN [Concomitant]
  3. ZANTAC 150 [Concomitant]
  4. FENISTIL (DIMETINDENE MALEATE) [Concomitant]
  5. DEXAMETHASONE TAB [Concomitant]
  6. NEORECORMON (EPOETIN BETA) [Concomitant]
  7. VENOFER (SACCHARATED IRON OXICE) [Concomitant]

REACTIONS (1)
  - EPILEPSY [None]
